FAERS Safety Report 14386226 (Version 1)
Quarter: 2018Q1

REPORT INFORMATION
  Report Type: Spontaneous
  Country: US (occurrence: US)
  Receive Date: 20180115
  Receipt Date: 20180115
  Transmission Date: 20180509
  Serious: Yes (Other)
  Sender: FDA-Public Use
  Company Number: US-SA-2017SA082230

PATIENT
  Age: 63 Year
  Sex: Female

DRUGS (4)
  1. TAXOTERE [Suspect]
     Active Substance: DOCETAXEL
     Indication: BREAST CANCER
     Dosage: DOSE : 75
     Route: 051
     Dates: start: 20070716, end: 20070716
  2. HERCEPTIN [Concomitant]
     Active Substance: TRASTUZUMAB
  3. TAXOTERE [Suspect]
     Active Substance: DOCETAXEL
     Indication: BREAST CANCER
     Dosage: DOSE : 75
     Route: 051
     Dates: start: 20071107, end: 20071107
  4. PARAPLATIN [Concomitant]
     Active Substance: CARBOPLATIN

REACTIONS (7)
  - Emotional distress [Unknown]
  - Hair colour changes [Unknown]
  - Injury [Unknown]
  - Anxiety [Unknown]
  - Hair texture abnormal [Unknown]
  - Alopecia [Recovering/Resolving]
  - Pain [Unknown]

NARRATIVE: CASE EVENT DATE: 200805
